FAERS Safety Report 9277244 (Version 1)
Quarter: 2013Q2

REPORT INFORMATION
  Report Type: Spontaneous
  Country: US (occurrence: US)
  Receive Date: 20130508
  Receipt Date: 20130508
  Transmission Date: 20140414
  Serious: No
  Sender: FDA-Public Use
  Company Number: US-009507513-1304USA016403

PATIENT
  Age: 61 Year
  Sex: Male

DRUGS (3)
  1. VICTRELIS [Suspect]
     Indication: HEPATITIS C
     Dosage: 800 MG(REPORTED AS 4(200 MG CAPS), TID
     Route: 048
  2. RIBASPHERE [Suspect]
  3. PEGASYS [Suspect]

REACTIONS (4)
  - Fatigue [Unknown]
  - Dysgeusia [Unknown]
  - Rash [Unknown]
  - Product quality issue [Unknown]
